FAERS Safety Report 24023247 (Version 8)
Quarter: 2024Q3

REPORT INFORMATION
  Report Type: Report from Study
  Country: CN (occurrence: CN)
  Receive Date: 20240627
  Receipt Date: 20240710
  Transmission Date: 20241016
  Serious: No
  Sender: ROCHE
  Company Number: CN-ROCHE-3157522

PATIENT
  Age: 55 Year
  Sex: Female
  Weight: 56.0 kg

DRUGS (19)
  1. ALECTINIB [Suspect]
     Active Substance: ALECTINIB
     Indication: Lung cancer metastatic
     Route: 048
     Dates: start: 20211207
  2. ALECTINIB [Suspect]
     Active Substance: ALECTINIB
     Route: 048
     Dates: start: 20210625
  3. POTASSIUM CHLORIDE [Concomitant]
     Active Substance: POTASSIUM CHLORIDE
     Indication: Hypokalaemia
     Route: 048
     Dates: start: 20211016
  4. HERBALS\DIAMMONIUM GLYCYRRHIZINATE [Concomitant]
     Active Substance: HERBALS\DIAMMONIUM GLYCYRRHIZINATE
     Dates: start: 20220723, end: 20220725
  5. PAMIDRONATE DISODIUM AND GLUCOSE [Concomitant]
     Route: 050
     Dates: start: 20220723, end: 20220725
  6. PAMIDRONATE DISODIUM AND GLUCOSE [Concomitant]
     Route: 050
     Dates: start: 20220917, end: 20220918
  7. PAMIDRONATE DISODIUM [Concomitant]
     Active Substance: PAMIDRONATE DISODIUM
     Dates: start: 20220625, end: 20220626
  8. PAMIDRONATE DISODIUM [Concomitant]
     Active Substance: PAMIDRONATE DISODIUM
     Dates: start: 20230505, end: 20230505
  9. MANNATIDE [Concomitant]
     Dates: start: 20220625, end: 20220627
  10. COMPOUND KUSHEN INJECTION [Concomitant]
     Dates: start: 20230504, end: 20230505
  11. INOSINE AND SODIUM CHLORIDE [Concomitant]
     Dates: start: 20220909, end: 20220912
  12. INOSINE AND SODIUM CHLORIDE [Concomitant]
     Dates: start: 20220625, end: 20220627
  13. POTASSIUM CHLORIDE [Concomitant]
     Active Substance: POTASSIUM CHLORIDE
     Dates: start: 20230506, end: 202306
  14. ASPARAGUS [Concomitant]
     Active Substance: ASPARAGUS
     Dates: start: 20220917, end: 20220919
  15. VITAMIN B12 [Concomitant]
     Active Substance: CYANOCOBALAMIN
     Dates: start: 20220918, end: 20220918
  16. VITAMIN B12 [Concomitant]
     Active Substance: CYANOCOBALAMIN
     Dates: start: 20220919, end: 20220919
  17. MAGNESIUM SULFATE [Concomitant]
     Active Substance: MAGNESIUM SULFATE\MAGNESIUM SULFATE HEPTAHYDRATE
     Dates: start: 20220918, end: 20220918
  18. MAGNESIUM SULFATE [Concomitant]
     Active Substance: MAGNESIUM SULFATE\MAGNESIUM SULFATE HEPTAHYDRATE
     Dates: start: 20220919, end: 20220919
  19. RABEPRAZOLE [Concomitant]
     Active Substance: RABEPRAZOLE
     Indication: Chronic gastritis
     Dates: start: 20230506, end: 202306

REACTIONS (4)
  - Blood bilirubin increased [Not Recovered/Not Resolved]
  - Aspartate aminotransferase increased [Not Recovered/Not Resolved]
  - Hypokalaemia [Recovered/Resolved]
  - Leukopenia [Recovered/Resolved]

NARRATIVE: CASE EVENT DATE: 20220126
